FAERS Safety Report 8923496 (Version 2)
Quarter: 2012Q4

REPORT INFORMATION
  Report Type: 
  Country: BR (occurrence: BR)
  Receive Date: 20121123
  Receipt Date: 20121219
  Transmission Date: 20130627
  Serious: Yes (Other)
  Sender: FDA-Public Use
  Company Number: BR-PFIZER INC-2012292313

PATIENT
  Age: 61 Year
  Sex: Male

DRUGS (2)
  1. CARDURAN NEO [Suspect]
     Indication: MICTURITION DISORDER
     Dosage: one tablet (4mg) daily
     Route: 048
     Dates: start: 1998, end: 2004
  2. CARDURAN NEO [Suspect]
     Indication: PROSTATIC DISORDER

REACTIONS (2)
  - Prostatic atrophy [Unknown]
  - Micturition disorder [Unknown]
